FAERS Safety Report 12138433 (Version 2)
Quarter: 2016Q2

REPORT INFORMATION
  Report Type: Spontaneous
  Country: US (occurrence: US)
  Receive Date: 20160302
  Receipt Date: 20160426
  Transmission Date: 20160815
  Serious: Yes (Other)
  Sender: FDA-Public Use
  Company Number: US-SUCAMPO PHARMACEUTICALS, INC.-SPI201600175

PATIENT
  Age: 45 Year
  Sex: Male

DRUGS (5)
  1. AMITIZA [Suspect]
     Active Substance: LUBIPROSTONE
     Indication: CONSTIPATION
     Dosage: 8 MCG, UNK
     Dates: end: 20160225
  2. TYSABRI [Concomitant]
     Active Substance: NATALIZUMAB
     Indication: PRODUCT USED FOR UNKNOWN INDICATION
     Dosage: UNK
     Dates: start: 2014
  3. UNKNOWN [Concomitant]
     Active Substance: UNSPECIFIED INGREDIENT
     Indication: PRODUCT USED FOR UNKNOWN INDICATION
  4. AMPYRA [Suspect]
     Active Substance: DALFAMPRIDINE
     Indication: GAIT DISTURBANCE
     Dosage: 10 MG, BID
     Route: 048
     Dates: start: 20131205
  5. BACLOFEN. [Concomitant]
     Active Substance: BACLOFEN
     Indication: PRODUCT USED FOR UNKNOWN INDICATION
     Dosage: 20 MG, TID
     Route: 048
     Dates: start: 20141127

REACTIONS (3)
  - Drug interaction [Unknown]
  - Seizure [Recovered/Resolved]
  - Gait disturbance [Unknown]

NARRATIVE: CASE EVENT DATE: 20151230
